FAERS Safety Report 8052462 (Version 6)
Quarter: 2015Q2

REPORT INFORMATION
  Report Type: Report from Study
  Country: CA (occurrence: CA)
  Receive Date: 20110725
  Receipt Date: 20150608
  Transmission Date: 20150821
  Serious: Yes (Hospitalization, Other)
  Sender: FDA-Public Use
  Company Number: CA-ROCHE-790526

PATIENT
  Sex: Female
  Weight: 70.37 kg

DRUGS (9)
  1. AVASTIN [Suspect]
     Active Substance: BEVACIZUMAB
     Route: 042
     Dates: start: 20130430, end: 20140422
  2. AVASTIN [Suspect]
     Active Substance: BEVACIZUMAB
     Route: 042
  3. SERTRALINE [Concomitant]
     Active Substance: SERTRALINE HYDROCHLORIDE
     Dosage: DRUG NAME: SERTALINE
     Route: 065
  4. AVASTIN [Suspect]
     Active Substance: BEVACIZUMAB
     Indication: HEREDITARY HAEMORRHAGIC TELANGIECTASIA
     Route: 042
  5. AVASTIN [Suspect]
     Active Substance: BEVACIZUMAB
     Route: 042
  6. HYDROMORPH CONTIN [Concomitant]
     Active Substance: HYDROMORPHONE
  7. FOLIC ACID. [Concomitant]
     Active Substance: FOLIC ACID
  8. LACTULOSE. [Concomitant]
     Active Substance: LACTULOSE
  9. LEVETIRACETAM. [Concomitant]
     Active Substance: LEVETIRACETAM

REACTIONS (3)
  - Gallbladder disorder [Not Recovered/Not Resolved]
  - Weight increased [Unknown]
  - Off label use [Unknown]
